FAERS Safety Report 7406650-2 (Version None)
Quarter: 2011Q2

REPORT INFORMATION
  Report Type: 
  Country: None (occurrence: None)
  Receive Date: 20110411
  Receipt Date: 20110406
  Transmission Date: 20111010
  Serious: Yes (Hospitalization)
  Sender: FDA-Public Use
  Company Number: RU-BRISTOL-MYERS SQUIBB COMPANY-15548027

PATIENT
  Age: 64 Year
  Sex: Female

DRUGS (9)
  1. BLINDED: PLACEBO [Suspect]
     Indication: TYPE 2 DIABETES MELLITUS
     Dosage: INTERRUPTED
     Dates: start: 20110128
  2. ASPIRIN [Concomitant]
     Dosage: 1 DF ={ 100MG
     Dates: start: 20110125
  3. BERODUAL [Concomitant]
     Dosage: 1 DF = 6UNITS
     Dates: start: 20110209, end: 20110225
  4. CELEBREX [Suspect]
  5. BLINDED: SAXAGLIPTIN [Suspect]
     Indication: TYPE 2 DIABETES MELLITUS
     Dosage: INTERRUPTED ON 17MAR2011
     Dates: start: 20110128
  6. LASOLVAN [Concomitant]
     Dosage: 1 DF = 6 UNITS
     Dates: start: 20110209, end: 20110221
  7. THIOCTACID [Suspect]
  8. DEXONA [Suspect]
     Dates: start: 20110209, end: 20110224
  9. METFORMIN HCL [Suspect]
     Indication: TYPE 2 DIABETES MELLITUS

REACTIONS (4)
  - ASTHMA [None]
  - URTICARIA [None]
  - FACE OEDEMA [None]
  - PANCREATITIS CHRONIC [None]
